FAERS Safety Report 23825292 (Version 1)
Quarter: 2024Q2

REPORT INFORMATION
  Report Type: Spontaneous
  Country: US (occurrence: None)
  Receive Date: 20240506
  Receipt Date: 20240506
  Transmission Date: 20240716
  Serious: Yes (Congenital Anomaly)
  Sender: FDA-Public Use
  Company Number: None

PATIENT
  Age: 0 Year
  Sex: Male
  Weight: 3.68 kg

DRUGS (2)
  1. SERTRALINE [Suspect]
     Active Substance: SERTRALINE HYDROCHLORIDE
     Dates: start: 20200105
  2. RIZATRIPTAN [Suspect]
     Active Substance: RIZATRIPTAN
     Indication: Genital herpes
     Dates: start: 20200105, end: 20200329

REACTIONS (5)
  - Accessory auricle [None]
  - Deformity [None]
  - Ear disorder [None]
  - Congenital anomaly [None]
  - Maternal drugs affecting foetus [None]

NARRATIVE: CASE EVENT DATE: 20201008
